FAERS Safety Report 10946988 (Version 1)
Quarter: 2015Q1

REPORT INFORMATION
  Report Type: Spontaneous
  Country: US (occurrence: None)
  Receive Date: 20150212
  Receipt Date: 20150212
  Transmission Date: 20150721
  Serious: No
  Sender: FDA-Public Use
  Company Number: TPA2011A00691

PATIENT
  Age: 7 Decade
  Sex: Male

DRUGS (2)
  1. MULTIPLE UNKNOWN MEDICATIONS (ALL OTHER THERAPEUTIC PRODUCTS) [Concomitant]
  2. ULORIC [Suspect]
     Active Substance: FEBUXOSTAT
     Indication: GOUT
     Dosage: ABOUT 1 YR
     Route: 048

REACTIONS (2)
  - Pruritus [None]
  - Rash [None]
